FAERS Safety Report 8140488-6 (Version None)
Quarter: 2012Q1

REPORT INFORMATION
  Report Type: 
  Country: None (occurrence: None)
  Receive Date: 20120216
  Receipt Date: 20120210
  Transmission Date: 20120608
  Serious: Yes (Death)
  Sender: FDA-Public Use
  Company Number: US-PFIZER INC-2012037063

PATIENT
  Sex: Female

DRUGS (1)
  1. VFEND [Suspect]
     Indication: LEUKAEMIA
     Dosage: 200 MG, 2X/DAY
     Dates: start: 20111228, end: 20120207

REACTIONS (2)
  - BLOOD PRESSURE DECREASED [None]
  - NO THERAPEUTIC RESPONSE [None]
